FAERS Safety Report 10221200 (Version 1)
Quarter: 2014Q2

REPORT INFORMATION
  Report Type: Spontaneous
  Country: US (occurrence: US)
  Receive Date: 20140606
  Receipt Date: 20140606
  Transmission Date: 20141212
  Serious: No
  Sender: FDA-Public Use
  Company Number: US-GLAXOSMITHKLINE-A1064120A

PATIENT
  Age: 83 Year
  Sex: Female

DRUGS (2)
  1. BREO ELLIPTA [Suspect]
     Indication: CHRONIC OBSTRUCTIVE PULMONARY DISEASE
     Dosage: 1PUFF PER DAY
     Route: 055
     Dates: start: 20140304
  2. LISINOPRIL [Concomitant]

REACTIONS (4)
  - Productive cough [Recovering/Resolving]
  - Headache [Recovering/Resolving]
  - Mucous membrane disorder [Recovering/Resolving]
  - Chills [Recovering/Resolving]
